FAERS Safety Report 10574689 (Version 2)
Quarter: 2015Q1

REPORT INFORMATION
  Report Type: Spontaneous
  Country: IT (occurrence: IT)
  Receive Date: 20141110
  Receipt Date: 20150211
  Transmission Date: 20150720
  Serious: Yes (Hospitalization)
  Sender: FDA-Public Use
  Company Number: IT-PFIZER INC-2014305856

PATIENT
  Age: 71 Year
  Sex: Male
  Weight: 85 kg

DRUGS (3)
  1. DETRUSITOL [Suspect]
     Active Substance: TOLTERODINE TARTRATE
     Indication: URETHRAL SPASM
     Dosage: 4 ML, DAILY
     Route: 048
     Dates: start: 20141014, end: 20141023
  2. PROSTIGMINA [Interacting]
     Active Substance: NEOSTIGMINE BROMIDE
     Indication: CONSTIPATION
     Dosage: 0.5 ML, DAILY
     Route: 042
     Dates: start: 20141018
  3. PURSENNID [Concomitant]
     Active Substance: SENNOSIDES A AND B
     Dosage: UNK

REACTIONS (3)
  - Drug interaction [Recovering/Resolving]
  - Drug ineffective [Recovering/Resolving]
  - Constipation [Recovering/Resolving]

NARRATIVE: CASE EVENT DATE: 20141023
